FAERS Safety Report 7439136-X (Version None)
Quarter: 2011Q2

REPORT INFORMATION
  Report Type: 
  Country: None (occurrence: None)
  Receive Date: 20110427
  Receipt Date: 20100301
  Transmission Date: 20111010
  Serious: No
  Sender: FDA-Public Use
  Company Number: US-BAYER-201015342NA

PATIENT
  Sex: Female

DRUGS (3)
  1. BENADRYL SWISH [Concomitant]
     Dosage: UNK
     Dates: start: 20100220
  2. LIDOCAINE [Concomitant]
     Dosage: UNK
     Dates: start: 20100227, end: 20100227
  3. YAZ [Suspect]
     Indication: CONTRACEPTION
     Dosage: UNK
     Route: 048
     Dates: start: 20100101, end: 20100227

REACTIONS (7)
  - OROPHARYNGEAL PAIN [None]
  - AGEUSIA [None]
  - APHAGIA [None]
  - SWOLLEN TONGUE [None]
  - DYSGEUSIA [None]
  - GINGIVITIS [None]
  - ORAL PAIN [None]
